FAERS Safety Report 12232283 (Version 1)
Quarter: 2016Q2

REPORT INFORMATION
  Report Type: Spontaneous
  Country: FR (occurrence: FR)
  Receive Date: 20160401
  Receipt Date: 20160401
  Transmission Date: 20160815
  Serious: Yes (Hospitalization)
  Sender: FDA-Public Use
  Company Number: FR-SA-2016SA060998

PATIENT
  Age: 37 Year
  Sex: Male

DRUGS (4)
  1. TAZOCILLINE [Suspect]
     Active Substance: PIPERACILLIN SODIUM\TAZOBACTAM SODIUM
     Route: 042
     Dates: start: 20160222, end: 20160227
  2. LOVENOX [Suspect]
     Active Substance: ENOXAPARIN SODIUM
     Route: 058
     Dates: start: 20160223, end: 20160228
  3. NEFOPAM [Suspect]
     Active Substance: NEFOPAM
     Route: 042
     Dates: start: 20160222, end: 20160228
  4. CIFLOX [Suspect]
     Active Substance: CIPROFLOXACIN
     Route: 048
     Dates: start: 20160222, end: 20160226

REACTIONS (1)
  - Toxic epidermal necrolysis [Recovering/Resolving]

NARRATIVE: CASE EVENT DATE: 20160227
